FAERS Safety Report 6257485-8 (Version None)
Quarter: 2009Q3

REPORT INFORMATION
  Report Type: 
  Country: None (occurrence: None)
  Receive Date: 20090706
  Receipt Date: 20090624
  Transmission Date: 20100115
  Serious: Yes (Other)
  Sender: FDA-Public Use
  Company Number: US-ELI_LILLY_AND_COMPANY-US200906006045

PATIENT
  Sex: Male

DRUGS (20)
  1. BYETTA [Suspect]
     Indication: TYPE 2 DIABETES MELLITUS
     Dosage: 5 UG, 2/D
     Route: 058
     Dates: start: 20090317, end: 20090413
  2. METFORMIN HCL [Concomitant]
     Indication: TYPE 2 DIABETES MELLITUS
     Dosage: 1000 MG, 2/D
     Route: 048
     Dates: end: 20090526
  3. JANUVIA [Concomitant]
     Indication: TYPE 2 DIABETES MELLITUS
     Dosage: 100 MG, DAILY (1/D)
     Route: 048
     Dates: start: 20090401, end: 20090526
  4. NOVOLOG MIX 70/30 [Concomitant]
     Indication: TYPE 2 DIABETES MELLITUS
     Dosage: 15 U, EACH MORNING
     Dates: start: 20090526, end: 20090618
  5. NOVOLOG MIX 70/30 [Concomitant]
     Dosage: 7 U, EACH EVENING
     Dates: start: 20090526, end: 20090618
  6. NOVOLOG MIX 70/30 [Concomitant]
     Dosage: 20 U, 3/D
     Dates: start: 20090618
  7. PRILOSEC [Concomitant]
     Dosage: 40 MG, DAILY (1/D)
     Route: 048
  8. LEXAPRO [Concomitant]
     Dosage: 10 MG, DAILY (1/D)
     Route: 048
  9. CRESTOR /01588602/ [Concomitant]
     Dosage: 5 MG, DAILY (1/D)
     Route: 048
  10. LOVAZA [Concomitant]
     Dosage: 2 G, DAILY (1/D)
     Route: 048
  11. DIOVAN [Concomitant]
     Dosage: 80 MG, DAILY (1/D)
     Route: 048
  12. REQUIP [Concomitant]
     Dosage: 0.25 MG, DAILY (1/D)
     Route: 048
  13. ALLEGRA [Concomitant]
     Dosage: UNK, AS NEEDED
  14. CALCIUM /N/A/ [Concomitant]
     Dosage: 1000 MG, DAILY (1/D)
     Route: 048
  15. COQ10 [Concomitant]
     Dosage: 100 MG, DAILY (1/D)
     Route: 048
  16. MULTI-VITAMIN [Concomitant]
  17. FLEX-A-MIN [Concomitant]
     Dosage: UNK, 2/D
  18. SUDAFED 12 HOUR [Concomitant]
     Dosage: UNK, AS NEEDED
  19. MURINE                             /00509901/ [Concomitant]
     Dosage: UNK, AS NEEDED
  20. ASPIRIN [Concomitant]
     Dosage: 81 MG, DAILY (1/D)
     Route: 048

REACTIONS (3)
  - INJECTION SITE ERYTHEMA [None]
  - INJECTION SITE REACTION [None]
  - PANCREATIC CARCINOMA [None]
